FAERS Safety Report 22264879 (Version 1)
Quarter: 2023Q2

REPORT INFORMATION
  Report Type: Spontaneous
  Country: IN (occurrence: IN)
  Receive Date: 20230428
  Receipt Date: 20230428
  Transmission Date: 20230722
  Serious: Yes (Hospitalization)
  Sender: FDA-Public Use
  Company Number: IN-MYLANLABS-2023M1043709

PATIENT
  Age: 21 Year
  Sex: Male

DRUGS (3)
  1. TACROLIMUS [Suspect]
     Active Substance: TACROLIMUS
     Indication: Left ventricular dysfunction
     Dosage: 2 GRAM, QD POST-OPERATIVE DAY 1
     Route: 065
  2. TACROLIMUS [Suspect]
     Active Substance: TACROLIMUS
     Indication: Heart transplant rejection
     Dosage: DOSE REDUCED INITIALLY (2 MG/DAY) AND WITHDRAWN LATER
     Route: 065
  3. MYCOPHENOLATE MOFETIL [Concomitant]
     Active Substance: MYCOPHENOLATE MOFETIL
     Indication: Left ventricular dysfunction
     Dosage: 2 GRAM, QD POST-OPERATIVE DAY 1
     Route: 065

REACTIONS (1)
  - Peroneal nerve palsy [Recovered/Resolved]
